FAERS Safety Report 4308233-X (Version None)
Quarter: 2004Q1

REPORT INFORMATION
  Report Type: 
  Country: None (occurrence: None)
  Receive Date: 20040301
  Receipt Date: 20030915
  Transmission Date: 20041129
  Serious: No
  Sender: FDA-Public Use
  Company Number: US-BRISTOL-MYERS SQUIBB COMPANY-12383055

PATIENT

DRUGS (2)
  1. GLUCOPHAGE [Suspect]
     Route: 064
  2. PRENATAL VITAMINS [Concomitant]
     Route: 064

REACTIONS (2)
  - BLOOD GLUCOSE INCREASED [None]
  - PREGNANCY [None]
